FAERS Safety Report 10176943 (Version 1)
Quarter: 2014Q2

REPORT INFORMATION
  Report Type: Spontaneous
  Country: GB (occurrence: GB)
  Receive Date: 20140516
  Receipt Date: 20140516
  Transmission Date: 20141212
  Serious: Yes (Life-Threatening, Other)
  Sender: FDA-Public Use
  Company Number: GB-ABBVIE-14P-167-1235957-00

PATIENT
  Age: 7 Year
  Sex: Female
  Weight: 33 kg

DRUGS (2)
  1. HUMIRA [Suspect]
     Indication: CHRONIC RECURRENT MULTIFOCAL OSTEOMYELITIS
     Route: 058
     Dates: start: 201402, end: 201404
  2. PREDNISOLONE [Concomitant]
     Indication: PRODUCT USED FOR UNKNOWN INDICATION

REACTIONS (3)
  - Acute respiratory distress syndrome [Recovered/Resolved]
  - Sepsis [Recovered/Resolved]
  - Respiratory tract infection [Not Recovered/Not Resolved]
